FAERS Safety Report 11803827 (Version 2)
Quarter: 2015Q4

REPORT INFORMATION
  Report Type: Spontaneous
  Country: US (occurrence: US)
  Receive Date: 20151204
  Receipt Date: 20151216
  Transmission Date: 20160305
  Serious: No
  Sender: FDA-Public Use
  Company Number: ALCN2015US007315

PATIENT
  Sex: Female

DRUGS (1)
  1. NEO AND POLY B SULFATES + HYDROCORTISONE [Suspect]
     Active Substance: BACITRACIN\NEOMYCIN\POLYMYXIN B
     Indication: SINUSITIS
     Dosage: 4 GTT, ONCE/SINGLE
     Route: 001
     Dates: start: 20151119, end: 20151119

REACTIONS (4)
  - Ear pain [Recovered/Resolved]
  - Product use issue [Recovered/Resolved]
  - Hearing impaired [Not Recovered/Not Resolved]
  - Ear discomfort [Not Recovered/Not Resolved]
